FAERS Safety Report 15231175 (Version 1)
Quarter: 2018Q3

REPORT INFORMATION
  Report Type: Spontaneous
  Country: BY (occurrence: BY)
  Receive Date: 20180802
  Receipt Date: 20180802
  Transmission Date: 20181010
  Serious: Yes (Other)
  Sender: FDA-Public Use
  Company Number: BY-BAUSCH-BL-2018-020530

PATIENT
  Sex: Female

DRUGS (3)
  1. PIMECROLIMUS [Suspect]
     Active Substance: PIMECROLIMUS
     Indication: DERMATITIS ALLERGIC
     Route: 065
  2. AZELASTINE. [Suspect]
     Active Substance: AZELASTINE HYDROCHLORIDE
     Indication: HYPERSENSITIVITY
     Route: 065
  3. FLUTICASONE. [Suspect]
     Active Substance: FLUTICASONE
     Indication: HYPERSENSITIVITY
     Route: 065

REACTIONS (4)
  - Electrocardiogram QT prolonged [Unknown]
  - Maternal exposure during pregnancy [Unknown]
  - Sedation [Unknown]
  - Arrhythmia [Unknown]
